FAERS Safety Report 23718462 (Version 1)
Quarter: 2024Q2

REPORT INFORMATION
  Report Type: Spontaneous
  Country: GB (occurrence: GB)
  Receive Date: 20240408
  Receipt Date: 20240408
  Transmission Date: 20240715
  Serious: Yes (Disabling, Other)
  Sender: FDA-Public Use
  Company Number: GB-SUN PHARMACEUTICAL INDUSTRIES LTD-2024RR-440924

PATIENT
  Age: 36 Year
  Sex: Female
  Weight: 75 kg

DRUGS (1)
  1. SERTRALINE [Suspect]
     Active Substance: SERTRALINE HYDROCHLORIDE
     Indication: Anxiety
     Dosage: 50MG ONCE A DAY. INITIALLY TOOK AT NIGHT BUT WAS ADVISED SHOULD TAKE IN A MORNING DUE TO ITS WAKI...
     Route: 065
     Dates: start: 20231216, end: 20240319

REACTIONS (2)
  - Maternal exposure during breast feeding [Unknown]
  - Altered visual depth perception [Recovering/Resolving]

NARRATIVE: CASE EVENT DATE: 20240101
